FAERS Safety Report 12637328 (Version 1)
Quarter: 2016Q3

REPORT INFORMATION
  Report Type: Spontaneous
  Country: US (occurrence: US)
  Receive Date: 20160809
  Receipt Date: 20160809
  Transmission Date: 20161109
  Serious: No
  Sender: FDA-Public Use
  Company Number: US-BEH-2015056413

PATIENT
  Sex: Female
  Weight: 112 kg

DRUGS (31)
  1. VITAMIN C [Concomitant]
     Active Substance: ASCORBIC ACID
  2. FINACEA [Concomitant]
     Active Substance: AZELAIC ACID
  3. UROXATRAL [Concomitant]
     Active Substance: ALFUZOSIN HYDROCHLORIDE
  4. COREG [Concomitant]
     Active Substance: CARVEDILOL
  5. MESTINON [Concomitant]
     Active Substance: PYRIDOSTIGMINE BROMIDE
  6. PRADAXA [Concomitant]
     Active Substance: DABIGATRAN ETEXILATE MESYLATE
  7. DIPHENHYDRAMINE. [Concomitant]
     Active Substance: DIPHENHYDRAMINE
  8. EPIPEN [Concomitant]
     Active Substance: EPINEPHRINE
  9. TIKOSYN [Concomitant]
     Active Substance: DOFETILIDE
  10. COENZYME Q10 [Concomitant]
     Active Substance: UBIDECARENONE
  11. ASPIRIN. [Concomitant]
     Active Substance: ASPIRIN
  12. MICARDIS [Concomitant]
     Active Substance: TELMISARTAN
  13. METHOTREXATE. [Concomitant]
     Active Substance: METHOTREXATE
  14. PRIVIGEN [Suspect]
     Active Substance: HUMAN IMMUNOGLOBULIN G
     Route: 042
  15. LIDOCAINE/PRILOCAINE [Concomitant]
     Active Substance: LIDOCAINE\PRILOCAINE
  16. PRIVIGEN [Suspect]
     Active Substance: HUMAN IMMUNOGLOBULIN G
     Indication: MYASTHENIA GRAVIS
     Route: 042
  17. ACETAMINOPHEN. [Concomitant]
     Active Substance: ACETAMINOPHEN
  18. PREDNISONE. [Concomitant]
     Active Substance: PREDNISONE
  19. NEXIUM [Concomitant]
     Active Substance: ESOMEPRAZOLE MAGNESIUM
  20. MELATONIN [Concomitant]
     Active Substance: MELATONIN
  21. METROGEL [Concomitant]
     Active Substance: METRONIDAZOLE
  22. GINKGO [Concomitant]
     Active Substance: GINKGO
  23. HEPARIN [Concomitant]
     Active Substance: HEPARIN SODIUM
  24. SODIUM CHLORIDE. [Concomitant]
     Active Substance: SODIUM CHLORIDE
  25. NIACIN. [Concomitant]
     Active Substance: NIACIN
  26. CALCIUM +D [Concomitant]
     Active Substance: CALCIUM\VITAMIN D
  27. GABAPENTIN. [Concomitant]
     Active Substance: GABAPENTIN
  28. PRIVIGEN [Suspect]
     Active Substance: HUMAN IMMUNOGLOBULIN G
     Indication: HYPOGAMMAGLOBULINAEMIA
     Route: 042
  29. VITAMIN B12 [Concomitant]
     Active Substance: CYANOCOBALAMIN
  30. LIPITOR [Concomitant]
     Active Substance: ATORVASTATIN CALCIUM
  31. POTASSIUM [Concomitant]
     Active Substance: POTASSIUM

REACTIONS (1)
  - Blood pressure increased [Unknown]
